FAERS Safety Report 17488582 (Version 1)
Quarter: 2020Q1

REPORT INFORMATION
  Report Type: Spontaneous
  Country: US (occurrence: US)
  Receive Date: 20200220
  Receipt Date: 20200220
  Transmission Date: 20200409
  Serious: Yes (Hospitalization)
  Sender: FDA-Public Use
  Company Number: None

PATIENT
  Age: 57 Year
  Sex: Male

DRUGS (9)
  1. LISINOPRIL. [Concomitant]
     Active Substance: LISINOPRIL
  2. VANCOMY/DEX INJ [Concomitant]
  3. RENAT TAB [Concomitant]
  4. CINACALCET HC [Concomitant]
  5. PHOSIN CAP [Concomitant]
  6. CINACALCET HCL 30MG TAB [Suspect]
     Active Substance: CINACALCET HYDROCHLORIDE
     Route: 048
     Dates: start: 20190705, end: 20200219
  7. VITAMIN B12 [Concomitant]
     Active Substance: CYANOCOBALAMIN
  8. FOLIC ACID. [Concomitant]
     Active Substance: FOLIC ACID
  9. SENSIPAR TAB [Concomitant]

REACTIONS (1)
  - Transplant [None]

NARRATIVE: CASE EVENT DATE: 20200208
